FAERS Safety Report 8494637-0 (Version None)
Quarter: 2012Q3

REPORT INFORMATION
  Report Type: 
  Country: None (occurrence: None)
  Receive Date: 20120709
  Receipt Date: 20120628
  Transmission Date: 20120928
  Serious: Yes (Life-Threatening, Hospitalization)
  Sender: FDA-Public Use
  Company Number: CA-JNJFOC-20120614746

PATIENT
  Sex: Male
  Weight: 61.2 kg

DRUGS (2)
  1. REMICADE [Suspect]
     Dosage: LOADING DOSE (WEEK 2)
     Route: 042
     Dates: start: 20120518
  2. REMICADE [Suspect]
     Indication: COLITIS ULCERATIVE
     Route: 042
     Dates: start: 20120628

REACTIONS (8)
  - MELAENA [None]
  - URTICARIA [None]
  - INFUSION RELATED REACTION [None]
  - INFUSION SITE RASH [None]
  - TACHYCARDIA [None]
  - ANAEMIA [None]
  - BLOOD PRESSURE DECREASED [None]
  - PALLOR [None]
